FAERS Safety Report 15713497 (Version 1)
Quarter: 2018Q4

REPORT INFORMATION
  Report Type: Spontaneous
  Country: US (occurrence: US)
  Receive Date: 20181212
  Receipt Date: 20181212
  Transmission Date: 20190205
  Serious: No
  Sender: FDA-Public Use
  Company Number: US-009507513-1812USA003013

PATIENT
  Age: 59 Year
  Sex: Female

DRUGS (1)
  1. DULERA [Suspect]
     Active Substance: FORMOTEROL FUMARATE DIHYDRATE\MOMETASONE FUROATE
     Indication: ASTHMA
     Dosage: 100/5 MICROGRAM TWICE DAILY
     Dates: start: 201712

REACTIONS (5)
  - Chest discomfort [Recovered/Resolved]
  - Dyspnoea [Recovered/Resolved]
  - Product quality issue [Recovered/Resolved]
  - Inappropriate schedule of product administration [Unknown]
  - Product container issue [Recovered/Resolved]

NARRATIVE: CASE EVENT DATE: 201712
